FAERS Safety Report 11335182 (Version 3)
Quarter: 2016Q1

REPORT INFORMATION
  Report Type: Spontaneous
  Country: US (occurrence: US)
  Receive Date: 20150804
  Receipt Date: 20160309
  Transmission Date: 20160525
  Serious: Yes (Hospitalization)
  Sender: FDA-Public Use
  Company Number: US-AUROBINDO-AUR-APL-2015-06672

PATIENT
  Age: 51 Year
  Sex: Female

DRUGS (11)
  1. OXYCODONE [Concomitant]
     Active Substance: OXYCODONE
     Indication: BACK PAIN
     Dosage: UNK, 3 TIMES A DAY
     Route: 065
  2. OXYCODONE [Concomitant]
     Active Substance: OXYCODONE
     Dosage: 5/325 MG
  3. TIZANIDINE. [Interacting]
     Active Substance: TIZANIDINE
     Indication: BACK PAIN
     Dosage: 4 MG, TWO TIMES A DAY
     Route: 065
  4. TIZANIDINE. [Interacting]
     Active Substance: TIZANIDINE
  5. OXYCONTIN [Concomitant]
     Active Substance: OXYCODONE HYDROCHLORIDE
     Indication: BACK PAIN
     Dosage: 10 MG, TWO TIMES A DAY
     Route: 065
  6. OXYCONTIN [Concomitant]
     Active Substance: OXYCODONE HYDROCHLORIDE
  7. OXYCONTIN [Concomitant]
     Active Substance: OXYCODONE HYDROCHLORIDE
  8. CIPROFLOXACIN. [Suspect]
     Active Substance: CIPROFLOXACIN
     Indication: DIVERTICULITIS
     Dosage: 500 MG, TWO TIMES A DAY
     Route: 065
  9. TIZANIDINE. [Interacting]
     Active Substance: TIZANIDINE
  10. METRONIDAZOLE 500MG [Interacting]
     Active Substance: METRONIDAZOLE
     Indication: DIVERTICULITIS
     Dosage: 500 MG, 3 TIMES A DAY
     Route: 065
  11. OXYCODONE [Concomitant]
     Active Substance: OXYCODONE
     Dosage: 5/325 MG

REACTIONS (11)
  - Clostridium difficile infection [Unknown]
  - Orthostatic hypotension [Unknown]
  - Renal impairment [Unknown]
  - Thrombocytopenia [Unknown]
  - Dizziness [Unknown]
  - Headache [Unknown]
  - Abdominal pain [Unknown]
  - Gallbladder enlargement [Unknown]
  - Nausea [Unknown]
  - Vomiting [Unknown]
  - Labelled drug-drug interaction medication error [Unknown]
